FAERS Safety Report 7472227-6 (Version None)
Quarter: 2011Q2

REPORT INFORMATION
  Report Type: 
  Country: None (occurrence: None)
  Receive Date: 20110511
  Receipt Date: 20110421
  Transmission Date: 20111010
  Serious: No
  Sender: FDA-Public Use
  Company Number: US-B.I. PHARMACEUTICALS,INC./RIDGEFIELD-2011-BP-05314BP

PATIENT
  Age: 86 Year
  Sex: Female
  Weight: 87.54 kg

DRUGS (2)
  1. PRADAXA [Suspect]
     Dates: end: 20110202
  2. DIOVAN [Concomitant]

REACTIONS (5)
  - FATIGUE [None]
  - CHILLS [None]
  - MYALGIA [None]
  - HEADACHE [None]
  - DIZZINESS [None]
